FAERS Safety Report 23103611 (Version 2)
Quarter: 2023Q4

REPORT INFORMATION
  Report Type: Spontaneous
  Country: CN (occurrence: CN)
  Receive Date: 20231025
  Receipt Date: 20231205
  Transmission Date: 20240110
  Serious: Yes (Hospitalization)
  Sender: FDA-Public Use
  Company Number: CN-PUMA BIOTECHNOLOGY, INC.-2023-PUM-CN001173

PATIENT

DRUGS (5)
  1. NERLYNX [Suspect]
     Active Substance: NERATINIB
     Indication: Breast neoplasm
     Dosage: 240 MG, DAILY
     Route: 048
     Dates: start: 20230717, end: 20230718
  2. NERLYNX [Suspect]
     Active Substance: NERATINIB
     Indication: Breast cancer
     Dosage: 200 MG, DAILY
     Route: 048
     Dates: start: 20230719, end: 202307
  3. NERLYNX [Suspect]
     Active Substance: NERATINIB
     Dosage: 160 MG, DAILY
     Route: 048
     Dates: start: 202307, end: 20230728
  4. IMATINIB [Suspect]
     Active Substance: IMATINIB
     Indication: Product used for unknown indication
     Dosage: UNK
  5. EXEMESTANE [Concomitant]
     Active Substance: EXEMESTANE
     Indication: Endocrine disorder prophylaxis
     Dosage: 1 CAPSULE PER DAY AT 8 A.M., MORE THAN 4 HOURS APART FROM NERATINIB
     Dates: start: 202301

REACTIONS (7)
  - Shock [Recovered/Resolved]
  - Hypokalaemia [Recovered/Resolved]
  - Blood creatinine increased [Unknown]
  - Diarrhoea [Recovered/Resolved]
  - Dehydration [Recovered/Resolved]
  - Rash [Recovered/Resolved]
  - Faecaloma [Not Recovered/Not Resolved]

NARRATIVE: CASE EVENT DATE: 20230101
